FAERS Safety Report 6526450-5 (Version None)
Quarter: 2010Q1

REPORT INFORMATION
  Report Type: 
  Country: None (occurrence: None)
  Receive Date: 20100105
  Receipt Date: 20091228
  Transmission Date: 20100710
  Serious: Yes (Hospitalization)
  Sender: FDA-Public Use
  Company Number: US-BAYER-200936246NA

PATIENT
  Age: 58 Year
  Sex: Female

DRUGS (12)
  1. AVELOX [Suspect]
     Indication: DRUG USE FOR UNKNOWN INDICATION
  2. ALLOPURINOL [Concomitant]
     Route: 048
     Dates: start: 20080829
  3. AMBIEN [Concomitant]
     Route: 048
     Dates: start: 20071210
  4. BENICAR [Concomitant]
     Route: 048
     Dates: start: 20090908
  5. BISOPROLOL FUMARATE AND HYDROCHLOROTHIAZIDE [Concomitant]
     Dosage: AS USED: 10/6.25 MG
     Route: 048
     Dates: start: 20091106
  6. CRESTOR [Concomitant]
     Route: 048
     Dates: start: 20090709
  7. FISH OIL [Concomitant]
     Dates: start: 20090709
  8. RESCON-MX [Concomitant]
     Dosage: UNIT DOSE: 1 DF
     Route: 048
     Dates: start: 20090908
  9. UROCIT-K [Concomitant]
     Dosage: UNIT DOSE: 540 MG
     Route: 048
     Dates: start: 20080829
  10. VERAMYST [Concomitant]
     Dosage: 2 SPRAYS EACH NOSTRIL
     Route: 045
     Dates: start: 20090630
  11. ZIAC [Concomitant]
     Dosage: AS USED: 10/6.25 MG
     Dates: start: 20080916
  12. ZOLOFT [Concomitant]
     Dosage: TOTAL DAILY DOSE: 150 MG  UNIT DOSE: 50 MG
     Route: 048
     Dates: start: 20090630

REACTIONS (6)
  - CONTUSION [None]
  - HAEMORRHAGIC DIATHESIS [None]
  - HYPERSENSITIVITY [None]
  - PETECHIAE [None]
  - PLATELET COUNT DECREASED [None]
  - THROMBOCYTOPENIA [None]
